FAERS Safety Report 23953372 (Version 1)
Quarter: 2024Q2

REPORT INFORMATION
  Report Type: Report from Study
  Country: US (occurrence: US)
  Receive Date: 20240608
  Receipt Date: 20240608
  Transmission Date: 20240715
  Serious: Yes (Hospitalization, Other)
  Sender: FDA-Public Use
  Company Number: US-ABBVIE-5791557

PATIENT
  Sex: Male

DRUGS (3)
  1. SKYRIZI [Suspect]
     Active Substance: RISANKIZUMAB-RZAA
     Indication: Psoriasis
     Dosage: STRENGTH: 150MG/ML, WEEK 0
     Route: 058
     Dates: start: 20230406, end: 20230406
  2. SKYRIZI [Suspect]
     Active Substance: RISANKIZUMAB-RZAA
     Indication: Psoriatic arthropathy
     Dosage: STRENGTH: 150MG/ML, WEEK 4
     Route: 058
     Dates: start: 202305, end: 202305
  3. SKYRIZI [Suspect]
     Active Substance: RISANKIZUMAB-RZAA
     Dosage: STRENGTH: 150MG/ML
     Route: 058
     Dates: start: 202308

REACTIONS (2)
  - Large intestine perforation [Recovered/Resolved]
  - Diverticulitis [Recovered/Resolved]
